FAERS Safety Report 6775487-X (Version None)
Quarter: 2010Q2

REPORT INFORMATION
  Report Type: 
  Country: None (occurrence: None)
  Receive Date: 20100617
  Receipt Date: 20100607
  Transmission Date: 20101027
  Serious: Yes (Other)
  Sender: FDA-Public Use
  Company Number: PHHY2010JP36085

PATIENT

DRUGS (2)
  1. VOLTAREN [Suspect]
     Indication: ANALGESIC THERAPY
     Route: 054
  2. LOXONIN [Concomitant]
     Dosage: UNK

REACTIONS (2)
  - BLOOD PRESSURE DECREASED [None]
  - SHOCK [None]
